FAERS Safety Report 7797243-6 (Version None)
Quarter: 2011Q4

REPORT INFORMATION
  Report Type: 
  Country: None (occurrence: None)
  Receive Date: 20111005
  Receipt Date: 20110922
  Transmission Date: 20120403
  Serious: Yes (Hospitalization, Other)
  Sender: FDA-Public Use
  Company Number: JP-PFIZER INC-2011210913

PATIENT
  Age: 72 Year
  Sex: Male

DRUGS (2)
  1. CISPLATIN [Concomitant]
     Indication: SMALL CELL LUNG CANCER STAGE UNSPECIFIED
     Route: 041
  2. TOPOTECAN [Suspect]
     Indication: SMALL CELL LUNG CANCER STAGE UNSPECIFIED
     Route: 041

REACTIONS (4)
  - SHOCK [None]
  - PNEUMONIA [None]
  - BLOOD PRESSURE DECREASED [None]
  - WHITE BLOOD CELL COUNT DECREASED [None]
